FAERS Safety Report 5000737-X (Version None)
Quarter: 2006Q2

REPORT INFORMATION
  Report Type: 
  Country: None (occurrence: None)
  Receive Date: 20060512
  Receipt Date: 20060508
  Transmission Date: 20061013
  Serious: Yes (Death, Other)
  Sender: FDA-Public Use
  Company Number: PHBS2006US06843

PATIENT
  Age: 66 Year
  Sex: Male

DRUGS (3)
  1. CYCLOSPORINE [Suspect]
     Indication: RENAL TRANSPLANT
  2. AZATHIOPRINE [Concomitant]
  3. PREDNISOLONE [Concomitant]

REACTIONS (13)
  - BRADYPHRENIA [None]
  - C-REACTIVE PROTEIN INCREASED [None]
  - COGNITIVE DISORDER [None]
  - DEMENTIA [None]
  - DIARRHOEA [None]
  - DIVERTICULITIS [None]
  - FAECES DISCOLOURED [None]
  - GLIOBLASTOMA MULTIFORME [None]
  - INAPPROPRIATE AFFECT [None]
  - NAUSEA [None]
  - NIGHT SWEATS [None]
  - SOMNOLENCE [None]
  - WEIGHT DECREASED [None]
